FAERS Safety Report 9501163 (Version 1)
Quarter: 2013Q1

REPORT INFORMATION
  Report Type: Spontaneous
  Country: US (occurrence: None)
  Receive Date: 20130107
  Receipt Date: 20130107
  Transmission Date: 20140127
  Serious: No
  Sender: FDA-Public Use
  Company Number: PHEH2012US021367

PATIENT
  Age: 42 Year
  Sex: Female
  Weight: 54.4 kg

DRUGS (7)
  1. GILENYA (FINGOLIMOD) CAPSULE, 0.5MG [Suspect]
     Route: 048
     Dates: start: 20121025
  2. RITALIN (METHYPHENIDATE HYDROCHLORIDE) CAPSULE [Concomitant]
  3. GABAPENTIN (GABAPENTIN) CAPSULE [Concomitant]
  4. MACRODANTIN (NITROFURANTOIN) CAPSULE [Concomitant]
  5. EXCEDRIN MIGRAINE (ACETYLSALICYLIC ACID, CAFFEINE, PARACETAMOL) [Concomitant]
  6. ALEVE (NAPROXEN SODIUM) CAPSULE [Concomitant]
  7. XANAX (ALPRAZOLAM) TABLET [Concomitant]

REACTIONS (2)
  - Anxiety [None]
  - Vision blurred [None]
